FAERS Safety Report 6528936-6 (Version None)
Quarter: 2009Q4

REPORT INFORMATION
  Report Type: 
  Country: None (occurrence: None)
  Receive Date: 20091224
  Receipt Date: 20091214
  Transmission Date: 20100525
  Serious: Yes (Hospitalization)
  Sender: FDA-Public Use
  Company Number: 109639

PATIENT
  Age: 27 Year
  Sex: Female

DRUGS (5)
  1. DAIVOBET (DAIVOBET) [Suspect]
     Indication: PSORIASIS
     Dosage: }60G PER DAY, TOPICAL
     Route: 061
  2. METHOTREXATE [Concomitant]
  3. LEFLUNOMIDE [Concomitant]
  4. ACITRETIN [Concomitant]
  5. ENBREL [Concomitant]

REACTIONS (4)
  - ADRENAL INSUFFICIENCY [None]
  - CUSHING'S SYNDROME [None]
  - OVERDOSE [None]
  - SKIN STRIAE [None]
